FAERS Safety Report 7026658-9 (Version None)
Quarter: 2010Q3

REPORT INFORMATION
  Report Type: 
  Country: None (occurrence: None)
  Receive Date: 20100930
  Receipt Date: 20100921
  Transmission Date: 20110219
  Serious: Yes (Other)
  Sender: FDA-Public Use
  Company Number: 2010EU005081

PATIENT
  Age: 61 Year
  Sex: Male

DRUGS (2)
  1. PROGRAF [Suspect]
     Indication: RENAL TRANSPLANT
  2. PREDNISOLONE [Suspect]
     Indication: IMMUNOSUPPRESSION

REACTIONS (8)
  - COUGH [None]
  - DRUG INTERACTION [None]
  - H1N1 INFLUENZA [None]
  - INFECTION [None]
  - PANCREATIC FISTULA [None]
  - RHINITIS [None]
  - SEPSIS [None]
  - WOUND [None]
